FAERS Safety Report 7270451-9 (Version None)
Quarter: 2011Q1

REPORT INFORMATION
  Report Type: 
  Country: None (occurrence: None)
  Receive Date: 20110202
  Receipt Date: 20110124
  Transmission Date: 20110831
  Serious: Yes (Other)
  Sender: FDA-Public Use
  Company Number: US-AMGEN-USASP2011004438

PATIENT
  Age: 8 Year
  Sex: Male

DRUGS (1)
  1. ENBREL [Suspect]
     Indication: PSORIATIC ARTHROPATHY
     Dosage: 22.5 MG, QWK
     Route: 058
     Dates: start: 20101001

REACTIONS (3)
  - MEMORY IMPAIRMENT [None]
  - MOOD ALTERED [None]
  - AGGRESSION [None]
